FAERS Safety Report 10909217 (Version 1)
Quarter: 2015Q1

REPORT INFORMATION
  Report Type: Spontaneous
  Country: US (occurrence: US)
  Receive Date: 20150312
  Receipt Date: 20150312
  Transmission Date: 20150721
  Serious: Yes (Other)
  Sender: FDA-Public Use
  Company Number: US-ASTELLAS-2015US007306

PATIENT
  Age: 87 Year
  Sex: Male

DRUGS (1)
  1. XTANDI [Suspect]
     Active Substance: ENZALUTAMIDE
     Indication: PROSTATE CANCER
     Route: 065
     Dates: start: 201405, end: 201501

REACTIONS (8)
  - Spinal fracture [Unknown]
  - Drug ineffective [Unknown]
  - Facial bones fracture [Unknown]
  - Metastatic neoplasm [Unknown]
  - Prostatic specific antigen increased [Unknown]
  - Pain [Unknown]
  - Periorbital contusion [Unknown]
  - Fall [Unknown]

NARRATIVE: CASE EVENT DATE: 201410
